FAERS Safety Report 25073169 (Version 5)
Quarter: 2025Q3

REPORT INFORMATION
  Report Type: Spontaneous
  Country: JP (occurrence: JP)
  Receive Date: 20250313
  Receipt Date: 20250806
  Transmission Date: 20251020
  Serious: Yes (Death, Other)
  Sender: GLAXOSMITHKLINE
  Company Number: JP-GSKJP-JP2025029306AA

PATIENT
  Sex: Male
  Weight: 108.5 kg

DRUGS (7)
  1. SERETIDE [Suspect]
     Active Substance: FLUTICASONE PROPIONATE\SALMETEROL XINAFOATE
     Indication: Asthma
     Dosage: AEROSOL 250, BID, 2 INHALATIONS PER DOSE
  2. NUCALA [Suspect]
     Active Substance: MEPOLIZUMAB
     Indication: Asthma
     Dosage: 100 MG, Q4W
  3. SERETIDE [Suspect]
     Active Substance: FLUTICASONE PROPIONATE\SALMETEROL XINAFOATE
     Indication: Asthma
     Dosage: BID, 1 INHALATION PER DOSE
  4. MONTELUKAST [Concomitant]
     Active Substance: MONTELUKAST
     Indication: Asthma
     Dosage: 10 MG, 1D, AT NIGHT
  5. THEOPHYLLINE [Concomitant]
     Active Substance: THEOPHYLLINE
     Indication: Asthma
     Dosage: 200 MG, BID, IN THE MORNING AND AT NIGHT
  6. PROCATEROL HYDROCHLORIDE [Concomitant]
     Active Substance: PROCATEROL HYDROCHLORIDE
     Indication: Asthma
     Dosage: 0.05 MG, BID, IN THE MORNING AND AT NIGHT
  7. ALLOPURINOL [Concomitant]
     Active Substance: ALLOPURINOL
     Indication: Hyperuricaemia
     Dosage: 100 MG, BID, IN THE MORNING AND AT NIGHT

REACTIONS (2)
  - Asthma [Fatal]
  - Therapeutic product effect incomplete [Unknown]
